FAERS Safety Report 8775499 (Version 1)
Quarter: 2012Q4

REPORT INFORMATION
  Report Type: Report from Study
  Country: DE (occurrence: DE)
  Receive Date: 20120909
  Receipt Date: 20120909
  Transmission Date: 20130627
  Serious: Yes (Death, Hospitalization, Other)
  Sender: FDA-Public Use
  Company Number: DE-ABBOTT-12P-062-0976658-00

PATIENT
  Age: 73 None
  Sex: Male
  Weight: 50 kg

DRUGS (4)
  1. HUMIRA [Suspect]
     Route: 058
     Dates: start: 201010, end: 201201
  2. CICLOSPORIN [Concomitant]
     Indication: PRODUCT USED FOR UNKNOWN INDICATION
     Dates: start: 20080129, end: 20080409
  3. CICLOSPORIN [Concomitant]
     Dates: start: 20090325, end: 20100211
  4. MTX (NON-ABBOTT) [Concomitant]
     Indication: PRODUCT USED FOR UNKNOWN INDICATION
     Dates: start: 20080417, end: 20090302

REACTIONS (9)
  - Metastatic neoplasm [Fatal]
  - Pneumothorax [Unknown]
  - Gastritis [Not Recovered/Not Resolved]
  - Weight decreased [Unknown]
  - Hypercalcaemia [Unknown]
  - Hypokalaemia [Unknown]
  - Upper respiratory tract congestion [Unknown]
  - Hypophagia [Unknown]
  - Decreased appetite [Unknown]
